FAERS Safety Report 16720280 (Version 1)
Quarter: 2019Q3

REPORT INFORMATION
  Report Type: Spontaneous
  Country: FR (occurrence: FR)
  Receive Date: 20190820
  Receipt Date: 20190820
  Transmission Date: 20191005
  Serious: Yes (Hospitalization)
  Sender: FDA-Public Use
  Company Number: FR-MYLANLABS-2019M1076537

PATIENT
  Age: 72 Year
  Sex: Female
  Weight: 61 kg

DRUGS (8)
  1. PRIMPERAN [Concomitant]
     Active Substance: METOCLOPRAMIDE HYDROCHLORIDE
     Indication: PREMEDICATION
     Dosage: 20 MILLIGRAM, QD
     Route: 042
     Dates: start: 20190123, end: 20190127
  2. CISPLATIN MYLAN [Suspect]
     Active Substance: CISPLATIN
     Indication: SQUAMOUS CELL CARCINOMA OF THE TONGUE
     Dosage: 170 MILLIGRAM
     Route: 042
     Dates: start: 20190123, end: 20190123
  3. FLUOROURACILE [Concomitant]
     Active Substance: FLUOROURACIL
     Indication: SQUAMOUS CELL CARCINOMA OF THE TONGUE
     Dosage: 1700 MILLIGRAM
     Route: 042
     Dates: start: 20190123, end: 20190127
  4. METHYLPREDNISOLONE MERCK [Concomitant]
     Active Substance: METHYLPREDNISOLONE
     Indication: PREMEDICATION
     Dosage: UNK
     Route: 042
     Dates: start: 20190123, end: 20190123
  5. PANTOPRAZOLE SODIUM. [Concomitant]
     Active Substance: PANTOPRAZOLE SODIUM
     Indication: PRODUCT USED FOR UNKNOWN INDICATION
     Dosage: 40 MILLIGRAM, QD
     Route: 048
     Dates: start: 20190123, end: 20190127
  6. ATORVASTATINE EG [Concomitant]
     Active Substance: ATORVASTATIN CALCIUM
     Indication: PRODUCT USED FOR UNKNOWN INDICATION
     Dosage: 40 MILLIGRAM, QD
     Route: 048
     Dates: start: 20190123, end: 20190127
  7. ERBITUX [Concomitant]
     Active Substance: CETUXIMAB
     Indication: SQUAMOUS CELL CARCINOMA OF THE TONGUE
     Dosage: 680 MILLIGRAM
     Route: 042
     Dates: start: 20190123, end: 20190123
  8. ONDANSETRON [Concomitant]
     Active Substance: ONDANSETRON
     Indication: PREMEDICATION
     Dosage: 8 MILLIGRAM, QD
     Route: 042
     Dates: start: 20190123, end: 20190127

REACTIONS (6)
  - Renal tubular disorder [Recovering/Resolving]
  - Alopecia [Not Recovered/Not Resolved]
  - Aplasia [Recovered/Resolved]
  - Renal failure [Recovering/Resolving]
  - Vomiting [Recovered/Resolved]
  - Mucosal inflammation [Recovering/Resolving]

NARRATIVE: CASE EVENT DATE: 20190124
